FAERS Safety Report 5057917-7 (Version None)
Quarter: 2006Q3

REPORT INFORMATION
  Report Type: 
  Country: None (occurrence: None)
  Receive Date: 20060721
  Receipt Date: 20060331
  Transmission Date: 20061208
  Serious: Yes (Other)
  Sender: FDA-Public Use
  Company Number: US-GLAXOSMITHKLINE-A0599949A

PATIENT
  Age: 64 Year
  Sex: Female

DRUGS (5)
  1. AVANDIA [Suspect]
     Dosage: 8MG PER DAY
     Route: 048
     Dates: start: 20010101
  2. GLUCOVANCE [Concomitant]
  3. TOPROL-XL [Concomitant]
  4. LOTREL [Concomitant]
  5. LASIX [Concomitant]

REACTIONS (2)
  - ANAEMIA [None]
  - HAEMOGLOBIN DECREASED [None]
